FAERS Safety Report 8516628 (Version 3)
Quarter: 2016Q3

REPORT INFORMATION
  Report Type: Spontaneous
  Country: US (occurrence: US)
  Receive Date: 20120417
  Receipt Date: 20160816
  Transmission Date: 20161109
  Serious: No
  Sender: FDA-Public Use
  Company Number: US-ASTRAZENECA-2011SE70260

PATIENT
  Age: 74 Year
  Sex: Male
  Weight: 95.3 kg

DRUGS (3)
  1. NEXIUM [Suspect]
     Active Substance: ESOMEPRAZOLE MAGNESIUM
     Route: 048
  2. TOPROL XL [Suspect]
     Active Substance: METOPROLOL SUCCINATE
     Route: 048
  3. CRESTOR [Suspect]
     Active Substance: ROSUVASTATIN CALCIUM
     Route: 048
     Dates: start: 2010

REACTIONS (4)
  - Adverse event [Unknown]
  - Drug dose omission [Unknown]
  - Diabetes mellitus [Unknown]
  - Rheumatoid arthritis [Unknown]
